FAERS Safety Report 6384499-X (Version None)
Quarter: 2009Q4

REPORT INFORMATION
  Report Type: 
  Country: None (occurrence: None)
  Receive Date: 20090929
  Receipt Date: 20090921
  Transmission Date: 20100525
  Serious: No
  Sender: FDA-Public Use
  Company Number: TPG2009A00865

PATIENT
  Age: 64 Year
  Sex: Male

DRUGS (7)
  1. ACTOPLUS MET [Suspect]
     Indication: TYPE 2 DIABETES MELLITUS
     Dosage: 15 MG PIOGLITAZONE/ 850 MG METFORMIN
     Route: 048
     Dates: start: 20090601
  2. VENLAFAXINE HCL [Suspect]
     Indication: DEPRESSION
     Dosage: 75 MG (75 MG, 1 IN 1 D); 37.5 MG (37.5 MG, 1 IN 1 D)
     Route: 048
     Dates: start: 20050101, end: 20090906
  3. VENLAFAXINE HCL [Suspect]
     Indication: DEPRESSION
     Dosage: 75 MG (75 MG, 1 IN 1 D); 37.5 MG (37.5 MG, 1 IN 1 D)
     Route: 048
     Dates: start: 20090907
  4. TRIMIPRAMINE MALEATE [Suspect]
     Indication: DEPRESSION
     Route: 048
  5. MAGNESIUM [Concomitant]
  6. LOVAZA [Concomitant]
  7. MULTIVITAMIN [Concomitant]

REACTIONS (3)
  - CONDITION AGGRAVATED [None]
  - DEPRESSION [None]
  - DRUG INTERACTION [None]
